FAERS Safety Report 4722181-2 (Version None)
Quarter: 2005Q3

REPORT INFORMATION
  Report Type: 
  Country: None (occurrence: None)
  Receive Date: 20050722
  Receipt Date: 20040826
  Transmission Date: 20060218
  Serious: No
  Sender: FDA-Public Use
  Company Number: US-GLAXOSMITHKLINE-A0523631A

PATIENT
  Age: 63 Year
  Sex: Female

DRUGS (15)
  1. AVANDIA [Suspect]
     Dosage: 2MG PER DAY
     Route: 048
     Dates: start: 20040820
  2. COUMADIN [Concomitant]
  3. PLETAL [Concomitant]
  4. SYNTHROID [Concomitant]
  5. ATENOLOL [Concomitant]
  6. ZYRTEC [Concomitant]
  7. TRICOR [Concomitant]
  8. CELEBREX [Concomitant]
  9. ACIPHEX [Concomitant]
  10. ZOLOFT [Concomitant]
  11. KLONOPIN [Concomitant]
  12. AMBIEN [Concomitant]
  13. VICODIN [Concomitant]
  14. MIACALCIN [Concomitant]
  15. Z PACK [Concomitant]

REACTIONS (1)
  - HEADACHE [None]
